FAERS Safety Report 21217161 (Version 2)
Quarter: 2022Q4

REPORT INFORMATION
  Report Type: Spontaneous
  Country: US (occurrence: US)
  Receive Date: 20220816
  Receipt Date: 20221116
  Transmission Date: 20230113
  Serious: Yes (Other)
  Sender: FDA-Public Use
  Company Number: US-GILEAD-2022-0593520

PATIENT
  Sex: Male
  Weight: 154 kg

DRUGS (14)
  1. VIREAD [Suspect]
     Active Substance: TENOFOVIR DISOPROXIL FUMARATE
     Indication: HIV infection
     Dosage: UNK
     Route: 048
     Dates: start: 2004, end: 20140407
  2. GENVOYA [Concomitant]
     Active Substance: COBICISTAT\ELVITEGRAVIR\EMTRICITABINE\TENOFOVIR ALAFENAMIDE FUMARATE
  3. IBUPROFEN [Concomitant]
     Active Substance: IBUPROFEN
  4. TYLENOL [Concomitant]
     Active Substance: ACETAMINOPHEN
  5. TRAMADOL [Concomitant]
     Active Substance: TRAMADOL
     Dosage: UNK
     Dates: start: 2007, end: 2018
  6. ELAVIL [Concomitant]
     Active Substance: AMITRIPTYLINE HYDROCHLORIDE
  7. COMBIVIR [Concomitant]
     Active Substance: LAMIVUDINE\ZIDOVUDINE
  8. EPIVIR [Concomitant]
     Active Substance: LAMIVUDINE
  9. KALETRA [Concomitant]
     Active Substance: LOPINAVIR\RITONAVIR
  10. NORVIR [Concomitant]
     Active Substance: RITONAVIR
  11. RITONAVIR [Concomitant]
     Active Substance: RITONAVIR
  12. REYATAZ [Concomitant]
     Active Substance: ATAZANAVIR SULFATE
  13. SUSTIVA [Concomitant]
     Active Substance: EFAVIRENZ
  14. VIRAMUNE [Concomitant]
     Active Substance: NEVIRAPINE

REACTIONS (24)
  - Multiple fractures [Unknown]
  - Arm amputation [Unknown]
  - Immobile [Unknown]
  - Paralysis [Unknown]
  - Osteogenesis imperfecta [Unknown]
  - Spinal cord infection [Recovered/Resolved]
  - Osteomyelitis [Recovered/Resolved]
  - Bone disorder [Unknown]
  - Spinal osteoarthritis [Not Recovered/Not Resolved]
  - Wheelchair user [Unknown]
  - Bone deformity [Unknown]
  - Pain [Unknown]
  - Dental caries [Unknown]
  - Tooth loss [Unknown]
  - Kyphosis [Not Recovered/Not Resolved]
  - Scoliosis [Not Recovered/Not Resolved]
  - Gait disturbance [Not Recovered/Not Resolved]
  - Monoparesis [Unknown]
  - Impaired work ability [Not Recovered/Not Resolved]
  - Emotional distress [Not Recovered/Not Resolved]
  - Depression [Not Recovered/Not Resolved]
  - Anxiety [Not Recovered/Not Resolved]
  - Dysgraphia [Not Recovered/Not Resolved]
  - Feelings of worthlessness [Not Recovered/Not Resolved]

NARRATIVE: CASE EVENT DATE: 20050101
